FAERS Safety Report 13285986 (Version 1)
Quarter: 2017Q1

REPORT INFORMATION
  Report Type: Spontaneous
  Country: US (occurrence: US)
  Receive Date: 20170302
  Receipt Date: 20170302
  Transmission Date: 20170428
  Serious: No
  Sender: FDA-Public Use
  Company Number: None

PATIENT
  Age: 56 Year
  Sex: Female

DRUGS (9)
  1. GLEOSTINE [Suspect]
     Active Substance: LOMUSTINE
     Dosage: 40MG Q 6 W OR
     Route: 048
     Dates: start: 20161015
  2. POT CL MICRO [Concomitant]
  3. LOR [Concomitant]
  4. GLEOSTINE [Suspect]
     Active Substance: LOMUSTINE
     Indication: BRAIN NEOPLASM MALIGNANT
     Dosage: 100MG Q 6 W OR
     Route: 048
     Dates: start: 20161015
  5. TRAMADOL. [Concomitant]
     Active Substance: TRAMADOL
  6. ESTRADIOL. [Concomitant]
     Active Substance: ESTRADIOL
  7. FUROSEMIDE. [Concomitant]
     Active Substance: FUROSEMIDE
  8. PROMETHAZINE [Concomitant]
     Active Substance: PROMETHAZINE\PROMETHAZINE HYDROCHLORIDE
  9. BUT/APAP [Concomitant]

REACTIONS (5)
  - Rash [None]
  - Gastrointestinal infection [None]
  - Urticaria [None]
  - Malaise [None]
  - Dehydration [None]
